FAERS Safety Report 6258390-3 (Version None)
Quarter: 2009Q3

REPORT INFORMATION
  Report Type: 
  Country: None (occurrence: None)
  Receive Date: 20090707
  Receipt Date: 20090624
  Transmission Date: 20100115
  Serious: Yes (Hospitalization, Other)
  Sender: FDA-Public Use
  Company Number: GB-NAPPMUNDI-GBR-2009-0005206

PATIENT
  Sex: Female

DRUGS (16)
  1. TARGINACT 20MG/10MG [Suspect]
     Indication: CONSTIPATION
     Dosage: 20 MG/10 MG, SINGLE
     Route: 048
     Dates: start: 20090518, end: 20090518
  2. TRAMADOL HCL [Concomitant]
     Route: 065
  3. AMITRIPTYLINE [Concomitant]
     Dosage: UNK
     Route: 065
  4. LOPERAMIDE HYDROCHLORIDE [Concomitant]
     Route: 065
  5. GABAPENTIN [Concomitant]
     Route: 065
  6. OMEPRAZOLE [Concomitant]
     Route: 065
  7. CYCLIZINE [Concomitant]
     Route: 065
  8. ZOPICLONE [Concomitant]
     Route: 065
  9. FENTANYL [Concomitant]
     Route: 065
  10. PARACETAMOL [Concomitant]
     Route: 065
  11. VITAMIN B                          /90046501/ [Concomitant]
     Route: 065
  12. CODEINE [Concomitant]
     Route: 065
  13. GAVISCON                           /00237601/ [Concomitant]
     Route: 065
  14. HYOSCINE [Concomitant]
  15. QUETIAPINE FUMARATE [Concomitant]
     Route: 065
  16. CHLORPHENIRAMINE MALEATE [Concomitant]

REACTIONS (2)
  - CHEST PAIN [None]
  - PALPITATIONS [None]
